FAERS Safety Report 8402283-X (Version None)
Quarter: 2012Q2

REPORT INFORMATION
  Report Type: 
  Country: None (occurrence: None)
  Receive Date: 20120601
  Receipt Date: 20120521
  Transmission Date: 20120825
  Serious: Yes (Death)
  Sender: FDA-Public Use
  Company Number: US-BRISTOL-MYERS SQUIBB COMPANY-16618696

PATIENT
  Age: 32 Year
  Sex: Female

DRUGS (2)
  1. WARFARIN SODIUM [Suspect]
  2. LEPIRUDIN [Suspect]

REACTIONS (5)
  - INTRACRANIAL VENOUS SINUS THROMBOSIS [None]
  - HYDROCEPHALUS [None]
  - CEREBRAL INFARCTION [None]
  - SUBDURAL HAEMATOMA [None]
  - BRAIN HERNIATION [None]
